FAERS Safety Report 15209931 (Version 1)
Quarter: 2018Q3

REPORT INFORMATION
  Report Type: Spontaneous
  Country: CN (occurrence: CN)
  Receive Date: 20180727
  Receipt Date: 20180727
  Transmission Date: 20181010
  Serious: Yes (Hospitalization)
  Sender: FDA-Public Use
  Company Number: CN-MYLANLABS-2018M1056105

PATIENT
  Age: 37 Year
  Sex: Male

DRUGS (2)
  1. LOXOPROFEN [Interacting]
     Active Substance: LOXOPROFEN
     Indication: NECK PAIN
     Dosage: 300 MG
     Route: 065
  2. TIZANIDINE. [Suspect]
     Active Substance: TIZANIDINE
     Indication: NECK PAIN
     Dosage: 18 MG
     Route: 065

REACTIONS (3)
  - Bradycardia [Recovering/Resolving]
  - Drug interaction [Recovering/Resolving]
  - Atrioventricular block complete [Recovering/Resolving]
